FAERS Safety Report 10311553 (Version 3)
Quarter: 2015Q2

REPORT INFORMATION
  Report Type: Spontaneous
  Country: US (occurrence: US)
  Receive Date: 20140717
  Receipt Date: 20150515
  Transmission Date: 20150821
  Serious: Yes (Hospitalization, Other)
  Sender: FDA-Public Use
  Company Number: US-GLAXOSMITHKLINE-A1081339A

PATIENT
  Age: 57 Year
  Sex: Male

DRUGS (5)
  1. COREG CR [Suspect]
     Active Substance: CARVEDILOL PHOSPHATE
     Indication: HYPERTENSION
  2. COREG CR [Suspect]
     Active Substance: CARVEDILOL PHOSPHATE
     Indication: BLOOD PRESSURE ABNORMAL
     Dosage: 40MG AT UNKNOWN DOSING STARTED ON 29 SEP 2003, 80MG AT UNKNOWN DOSING STARTED ON 2 JUNE 2011
     Route: 065
     Dates: start: 20030929
  3. LAMICTAL [Suspect]
     Active Substance: LAMOTRIGINE
     Dosage: 200 UNK, UNK
  4. LAMICTAL [Suspect]
     Active Substance: LAMOTRIGINE
     Indication: PRODUCT USED FOR UNKNOWN INDICATION
     Dosage: 100MG AT UNKNOWN DOSING STARTED 2 JUNE 2011200MG AT UNKNOWN DOSING STARTED 22 OCT 2012
     Route: 065
     Dates: start: 20110602
  5. PAXIL CR [Suspect]
     Active Substance: PAROXETINE HYDROCHLORIDE
     Indication: PRODUCT USED FOR UNKNOWN INDICATION
     Dosage: 12.5MG AT UNKNOWN DOSING
     Route: 065
     Dates: start: 20030929, end: 20110602

REACTIONS (6)
  - Feeling abnormal [Not Recovered/Not Resolved]
  - Myocardial infarction [Unknown]
  - Gun shot wound [Unknown]
  - Therapy cessation [Unknown]
  - Hospitalisation [Unknown]
  - Headache [Not Recovered/Not Resolved]

NARRATIVE: CASE EVENT DATE: 20150506
